FAERS Safety Report 9504900 (Version 2)
Quarter: 2013Q4

REPORT INFORMATION
  Report Type: Report from Study
  Country: JP (occurrence: JP)
  Receive Date: 20130906
  Receipt Date: 20131010
  Transmission Date: 20140711
  Serious: Yes (Hospitalization, Other)
  Sender: FDA-Public Use
  Company Number: JP-GILEAD-2013-0082823

PATIENT
  Age: 69 Year
  Sex: Female

DRUGS (17)
  1. AMBRISENTAN [Suspect]
     Indication: PULMONARY ARTERIAL HYPERTENSION
     Dosage: 10 MG, QD
     Route: 048
     Dates: start: 20101008
  2. AMBRISENTAN [Suspect]
     Dosage: 5 MG, QD
     Route: 048
     Dates: start: 20101002, end: 20101007
  3. GLIVEC [Suspect]
     Indication: PULMONARY ARTERIAL HYPERTENSION
     Route: 048
     Dates: start: 20110806, end: 20110901
  4. PANALDINE [Suspect]
     Indication: PROPHYLAXIS
     Route: 048
     Dates: end: 20110221
  5. FLOLAN [Concomitant]
     Indication: PULMONARY ARTERIAL HYPERTENSION
     Route: 042
     Dates: start: 20091109
  6. REVATIO [Concomitant]
     Indication: PULMONARY ARTERIAL HYPERTENSION
     Route: 048
     Dates: start: 20080418
  7. HERBESSER R [Concomitant]
     Indication: PULMONARY ARTERIAL HYPERTENSION
     Route: 048
     Dates: start: 20100202
  8. FUROSEMIDE [Concomitant]
     Indication: CARDIAC FAILURE
     Route: 048
  9. FUROSEMIDE [Concomitant]
     Route: 048
  10. ALDACTONE A [Concomitant]
     Indication: CARDIAC FAILURE
     Route: 048
  11. ALDACTONE A [Concomitant]
     Route: 048
  12. LIVALO [Concomitant]
     Route: 048
  13. LIVALO [Concomitant]
     Route: 048
  14. ZYLORIC [Concomitant]
     Route: 048
  15. ZYLORIC [Concomitant]
     Route: 048
  16. PARIET [Concomitant]
     Route: 048
  17. PARIET [Concomitant]
     Route: 048

REACTIONS (4)
  - Anaemia [Recovered/Resolved]
  - Cardiac failure [Recovering/Resolving]
  - Small intestinal haemorrhage [Unknown]
  - Oedema peripheral [Not Recovered/Not Resolved]
